FAERS Safety Report 12277608 (Version 1)
Quarter: 2016Q2

REPORT INFORMATION
  Report Type: Spontaneous
  Country: US (occurrence: None)
  Receive Date: 20160415
  Receipt Date: 20160415
  Transmission Date: 20160815
  Serious: Yes (Hospitalization)
  Sender: FDA-Public Use
  Company Number: None

PATIENT
  Age: 49 Year
  Sex: Male

DRUGS (1)
  1. ENOXAPARIN SYRINGE 60MG TEVA [Suspect]
     Active Substance: ENOXAPARIN
     Indication: PULMONARY EMBOLISM
     Route: 058

REACTIONS (2)
  - Pulmonary embolism [None]
  - Condition aggravated [None]

NARRATIVE: CASE EVENT DATE: 20160310
